FAERS Safety Report 25218078 (Version 1)
Quarter: 2025Q2

REPORT INFORMATION
  Report Type: Spontaneous
  Country: ES (occurrence: ES)
  Receive Date: 20250421
  Receipt Date: 20250421
  Transmission Date: 20250716
  Serious: Yes (Hospitalization)
  Sender: AMGEN
  Company Number: ES-BEH-2025202034

PATIENT
  Age: 58 Year
  Sex: Male

DRUGS (1)
  1. TAVNEOS [Suspect]
     Active Substance: AVACOPAN
     Indication: Product used for unknown indication
     Dosage: 3 DF, BID
     Route: 048
     Dates: start: 202411, end: 202501

REACTIONS (4)
  - Pneumonia necrotising [Unknown]
  - Multiple organ dysfunction syndrome [Unknown]
  - Respiratory syncytial virus infection [Unknown]
  - Pneumococcal infection [Unknown]

NARRATIVE: CASE EVENT DATE: 20250101
